FAERS Safety Report 25096198 (Version 1)
Quarter: 2025Q1

REPORT INFORMATION
  Report Type: Report from Study
  Country: MX (occurrence: MX)
  Receive Date: 20250319
  Receipt Date: 20250319
  Transmission Date: 20250408
  Serious: Yes (Hospitalization, Other)
  Sender: ALEXION PHARMACEUTICALS
  Company Number: MX-AstraZeneca-CH-00797407A

PATIENT
  Age: 22 Month
  Weight: 15 kg

DRUGS (1)
  1. ULTOMIRIS [Suspect]
     Active Substance: RAVULIZUMAB-CWVZ
     Indication: Atypical haemolytic uraemic syndrome
     Dosage: 600 MILLIGRAM, Q2W

REACTIONS (4)
  - Rash [Recovered/Resolved]
  - Hypotension [Recovered/Resolved]
  - Seizure [Recovering/Resolving]
  - Hypotension [Recovering/Resolving]
